FAERS Safety Report 16239635 (Version 5)
Quarter: 2022Q1

REPORT INFORMATION
  Report Type: Report from Study
  Country: US (occurrence: US)
  Receive Date: 20190425
  Receipt Date: 20220323
  Transmission Date: 20220423
  Serious: Yes (Hospitalization)
  Sender: FDA-Public Use
  Company Number: US-JNJFOC-20190329834

PATIENT
  Age: 77 Year
  Sex: Male
  Weight: 145 kg

DRUGS (42)
  1. DARATUMUMAB [Suspect]
     Active Substance: DARATUMUMAB
     Indication: Plasma cell myeloma
     Dosage: MEDICATION KIT NUMBER 255700
     Route: 042
     Dates: start: 20150708, end: 20190208
  2. LENALIDOMIDE [Suspect]
     Active Substance: LENALIDOMIDE
     Indication: Plasma cell myeloma
     Dosage: DAYS 1-21 OR 28 DAY CYCLE
     Route: 048
     Dates: start: 20150708, end: 20160830
  3. DEXAMETHASONE [Concomitant]
     Active Substance: DEXAMETHASONE
     Indication: Plasma cell myeloma
     Dosage: DAY 1, 8, 15, 22, OF 28 DAY CYCLE
     Route: 042
     Dates: start: 20150708, end: 20160615
  4. CHOLECALCIFEROL [Concomitant]
     Active Substance: CHOLECALCIFEROL
     Indication: Hypertension
     Route: 048
     Dates: start: 20070828
  5. CYANOCOBALAMIN [Concomitant]
     Active Substance: CYANOCOBALAMIN
     Indication: Vitamin supplementation
     Route: 048
     Dates: start: 20080313
  6. FOLIC ACID [Concomitant]
     Active Substance: FOLIC ACID
     Indication: Anaemia
     Route: 048
     Dates: start: 20070827
  7. ACETAMINOPHEN\HYDROCODONE [Concomitant]
     Active Substance: ACETAMINOPHEN\HYDROCODONE
     Indication: Headache
     Route: 048
     Dates: start: 20150623
  8. LISINOPRIL [Concomitant]
     Active Substance: LISINOPRIL
     Indication: Hypertension
     Route: 048
     Dates: start: 20100311
  9. VITAMINS [Concomitant]
     Active Substance: VITAMINS
     Indication: Vitamin supplementation
     Route: 048
     Dates: start: 20070901
  10. POLYETHYLENE GLYCOL [Concomitant]
     Active Substance: POLYETHYLENE GLYCOL
     Indication: Constipation
     Route: 048
     Dates: start: 20150902
  11. NICOTINIC ACID [Concomitant]
     Active Substance: NIACIN
     Indication: Coronary artery disease
     Route: 048
     Dates: start: 20170927
  12. NITROGLYCERIN [Concomitant]
     Active Substance: NITROGLYCERIN
     Indication: Angina pectoris
     Route: 048
     Dates: start: 20070901
  13. PYRIDOXINE HYDROCHLORIDE [Concomitant]
     Active Substance: PYRIDOXINE HYDROCHLORIDE
     Indication: Anaemia
     Route: 048
     Dates: start: 20070827
  14. TRAMADOL [Concomitant]
     Active Substance: TRAMADOL
     Indication: Back pain
     Route: 048
     Dates: start: 20130603
  15. DOCUSATE [Concomitant]
     Active Substance: DOCUSATE
     Indication: Constipation
     Route: 048
     Dates: start: 20151020
  16. SENNA [Concomitant]
     Active Substance: SENNA LEAF\SENNOSIDES\SENNOSIDES A AND B
     Indication: Constipation
     Route: 048
     Dates: start: 20150820
  17. POTASSIUM CHLORIDE [Concomitant]
     Active Substance: POTASSIUM CHLORIDE
     Indication: Hypokalaemia
     Route: 048
     Dates: start: 20151113
  18. POTASSIUM CHLORIDE [Concomitant]
     Active Substance: POTASSIUM CHLORIDE
     Route: 048
     Dates: start: 20181126
  19. POTASSIUM CHLORIDE [Concomitant]
     Active Substance: POTASSIUM CHLORIDE
     Route: 048
  20. FUROSEMIDE [Concomitant]
     Active Substance: FUROSEMIDE
     Indication: Localised oedema
     Route: 048
     Dates: start: 20151223
  21. FUROSEMIDE [Concomitant]
     Active Substance: FUROSEMIDE
     Route: 048
     Dates: start: 20181101
  22. FUROSEMIDE [Concomitant]
     Active Substance: FUROSEMIDE
     Route: 048
  23. FUROSEMIDE [Concomitant]
     Active Substance: FUROSEMIDE
     Dosage: 0.5 TABLET TWICE A DAY
     Route: 048
     Dates: start: 20190319
  24. ACYCLOVIR [Concomitant]
     Active Substance: ACYCLOVIR
     Indication: Staphylococcal infection
     Route: 048
     Dates: start: 20150606
  25. SPIRONOLACTONE [Concomitant]
     Active Substance: SPIRONOLACTONE
     Indication: Hypertension
     Route: 048
     Dates: start: 20160316
  26. SPIRONOLACTONE [Concomitant]
     Active Substance: SPIRONOLACTONE
     Route: 048
  27. NIACIN [Concomitant]
     Active Substance: NIACIN
     Indication: Constipation
     Route: 048
     Dates: start: 20070828
  28. ATORVASTATIN [Concomitant]
     Active Substance: ATORVASTATIN
     Indication: Hypertension
     Route: 048
     Dates: start: 20150821
  29. TAMSULOSIN [Concomitant]
     Active Substance: TAMSULOSIN
     Indication: Prostatic obstruction
     Route: 048
     Dates: start: 2016
  30. ACETAMINOPHEN [Concomitant]
     Active Substance: ACETAMINOPHEN
     Indication: Headache
     Route: 048
     Dates: start: 20170210
  31. ACETAMINOPHEN [Concomitant]
     Active Substance: ACETAMINOPHEN
     Route: 048
  32. METOPROLOL [Concomitant]
     Active Substance: METOPROLOL
     Indication: Atrial fibrillation
     Route: 048
     Dates: start: 20170927
  33. ALLOPURINOL [Concomitant]
     Active Substance: ALLOPURINOL
     Indication: Hyperuricaemia
     Route: 048
     Dates: start: 20171108
  34. NITROFURANTOIN [Concomitant]
     Active Substance: NITROFURANTOIN
     Indication: Urinary tract infection
     Route: 048
     Dates: start: 20181029
  35. NITROFURANTOIN [Concomitant]
     Active Substance: NITROFURANTOIN
     Route: 048
  36. TOPIRAMATE [Concomitant]
     Active Substance: TOPIRAMATE
     Indication: Neuropathy peripheral
     Route: 048
     Dates: start: 20190114
  37. CLOPIDOGREL [Concomitant]
     Active Substance: CLOPIDOGREL BISULFATE
     Dosage: 75 MG TABLET
     Route: 048
     Dates: start: 20190711
  38. RIVAROXABAN [Concomitant]
     Active Substance: RIVAROXABAN
     Dosage: DAILY WITH DINNER
     Route: 048
  39. NYSTATIN [Concomitant]
     Active Substance: NYSTATIN
     Dosage: 1000 UNITS?APPLY TO AFFECTED AREA EVERY 8 HOURS
     Dates: start: 20160428
  40. POLYETHYLENE GLYCOL [Concomitant]
     Active Substance: POLYETHYLENE GLYCOL
     Dosage: TAKE 17 G BY MOUTH DAILY.
  41. NIACIN FLUSH FREE [Concomitant]
     Indication: Constipation
     Route: 048
     Dates: start: 20070828
  42. CYCLOBENZAPRINE                    /00428402/ [Concomitant]
     Indication: Spinal fracture
     Dosage: 5 MG
     Route: 048
     Dates: start: 20190311

REACTIONS (3)
  - Atrial flutter [Recovered/Resolved with Sequelae]
  - Spinal fracture [Recovered/Resolved]
  - Atrial fibrillation [Recovered/Resolved]

NARRATIVE: CASE EVENT DATE: 20190310
